FAERS Safety Report 6479853-1 (Version None)
Quarter: 2009Q4

REPORT INFORMATION
  Report Type: 
  Country: None (occurrence: None)
  Receive Date: 20091208
  Receipt Date: 20091127
  Transmission Date: 20100525
  Serious: Yes (Death)
  Sender: FDA-Public Use
  Company Number: DE-ROCHE-671585

PATIENT
  Age: 52 Year
  Sex: Female
  Weight: 83 kg

DRUGS (2)
  1. TAMIFLU [Suspect]
     Indication: H1N1 INFLUENZA
     Route: 048
     Dates: start: 20091030
  2. CORTISON [Concomitant]
     Route: 048

REACTIONS (7)
  - ASPHYXIA [None]
  - ASTHMA [None]
  - BRAIN DEATH [None]
  - CARDIAC ARREST [None]
  - CIRCULATORY COLLAPSE [None]
  - DIABETES INSIPIDUS [None]
  - HYPOXIC ENCEPHALOPATHY [None]
